FAERS Safety Report 15918517 (Version 1)
Quarter: 2019Q1

REPORT INFORMATION
  Report Type: Spontaneous
  Country: FR (occurrence: FR)
  Receive Date: 20190205
  Receipt Date: 20190205
  Transmission Date: 20190417
  Serious: Yes (Hospitalization)
  Sender: FDA-Public Use
  Company Number: FR-TEVA-2019-FR-1006717

PATIENT
  Age: 61 Year
  Sex: Male
  Weight: 83.6 kg

DRUGS (8)
  1. KETOPROFENE [Suspect]
     Active Substance: KETOPROFEN
     Indication: PAIN
     Dosage: 200 MILLIGRAM DAILY; 1-0-1
     Route: 048
     Dates: start: 20181221, end: 20181227
  2. MIOREL 4 MG, G?LULE [Suspect]
     Active Substance: THIOCOLCHICOSIDE
     Indication: PAIN
     Dosage: 8 MILLIGRAM DAILY; 1-0-1
     Route: 048
     Dates: start: 20181221, end: 20181227
  3. ACTISKENAN 10 MG, G?LULE [Suspect]
     Active Substance: MORPHINE SULFATE
     Indication: PAIN
     Dosage: 60 MILLIGRAM DAILY; IF NECESSARY
     Route: 048
     Dates: start: 20181227, end: 20181228
  4. ESOMEPRAZOLE. [Suspect]
     Active Substance: ESOMEPRAZOLE MAGNESIUM
     Indication: PROPHYLAXIS AGAINST GASTROINTESTINAL ULCER
     Dosage: 20 MILLIGRAM DAILY; 0-0-1
     Route: 048
     Dates: start: 20181221, end: 20181227
  5. SKENAN [Suspect]
     Active Substance: MORPHINE SULFATE
     Indication: PAIN
     Dosage: 60 MILLIGRAM DAILY; 1-0-1
     Route: 048
     Dates: start: 20181227, end: 20181228
  6. LYRICA [Suspect]
     Active Substance: PREGABALIN
     Indication: PAIN
     Dosage: 25 MILLIGRAM DAILY;
     Route: 048
     Dates: start: 20181227, end: 20181228
  7. TRAMADOL (CHLORHYDRATE DE) [Concomitant]
     Active Substance: TRAMADOL HYDROCHLORIDE
     Indication: PAIN
     Dosage: 300 MILLIGRAM DAILY; 1-0-1
     Route: 048
     Dates: start: 20181221
  8. DOLIPRANE [Suspect]
     Active Substance: ACETAMINOPHEN
     Indication: PAIN
     Dosage: 1000 MG SB
     Route: 048
     Dates: start: 20181227, end: 20181228

REACTIONS (1)
  - Pancreatitis acute [Recovering/Resolving]

NARRATIVE: CASE EVENT DATE: 20181228
